FAERS Safety Report 16550971 (Version 1)
Quarter: 2019Q3

REPORT INFORMATION
  Report Type: Spontaneous
  Country: US (occurrence: US)
  Receive Date: 20190709
  Receipt Date: 20190709
  Transmission Date: 20191004
  Serious: Yes (Hospitalization)
  Sender: FDA-Public Use
  Company Number: None

PATIENT
  Age: 35 Year
  Sex: Male

DRUGS (12)
  1. SIROLIMUS. [Suspect]
     Active Substance: SIROLIMUS
     Indication: RENAL TRANSPLANT
     Route: 048
     Dates: start: 20180123
  2. DOXAZOSIN TAB 1 MG [Concomitant]
  3. LOSARTAN POT TAB 50 MG [Concomitant]
  4. CYCLOSPORINE MOD 100 MG CAP [Concomitant]
  5. ROSUVASTATIN TAB 40 MG [Concomitant]
  6. ATENOLOL TAB 100 MG [Concomitant]
  7. AMLODIPINE TAB 5 MG [Concomitant]
  8. HYDROCO/APAP TAB 5-325 MG [Concomitant]
  9. PENICILLIN VK TAB 500 MG [Concomitant]
  10. OMEPRAZOLE CAP 20 MG [Concomitant]
  11. GEMFIBROZIL TAB 600 MG [Concomitant]
  12. NOVOLOG INJ FLEXPEN [Concomitant]

REACTIONS (1)
  - Gingival disorder [None]
